FAERS Safety Report 16430155 (Version 1)
Quarter: 2019Q2

REPORT INFORMATION
  Report Type: Spontaneous
  Country: US (occurrence: US)
  Receive Date: 20190614
  Receipt Date: 20190614
  Transmission Date: 20190711
  Serious: No
  Sender: FDA-Public Use
  Company Number: US-GLAXOSMITHKLINE-US2019104872

PATIENT
  Age: 70 Year
  Sex: Female

DRUGS (1)
  1. FLONASE ALLERGY RELIEF [Suspect]
     Active Substance: FLUTICASONE PROPIONATE
     Indication: HYPERSENSITIVITY
     Dosage: 2 SPRAY, QD
     Route: 045

REACTIONS (9)
  - Middle insomnia [Recovered/Resolved]
  - Psychomotor hyperactivity [Recovered/Resolved]
  - Anxiety [Recovered/Resolved]
  - Product prescribing error [Unknown]
  - Oropharyngeal pain [Recovered/Resolved]
  - Therapeutic response unexpected [Unknown]
  - Dry throat [Recovered/Resolved]
  - Throat irritation [Recovered/Resolved]
  - Adverse drug reaction [Recovered/Resolved]
